FAERS Safety Report 11536425 (Version 1)
Quarter: 2015Q3

REPORT INFORMATION
  Report Type: Spontaneous
  Country: US (occurrence: US)
  Receive Date: 20150922
  Receipt Date: 20150922
  Transmission Date: 20151125
  Serious: Yes (Other)
  Sender: FDA-Public Use
  Company Number: US-CELGENE-USA-2015094190

PATIENT
  Age: 62 Year
  Sex: Male
  Weight: 99.88 kg

DRUGS (4)
  1. OTEZLA [Suspect]
     Active Substance: APREMILAST
     Indication: PSORIATIC ARTHROPATHY
     Dosage: STARTER PACK
     Route: 048
     Dates: start: 201509
  2. OTEZLA [Suspect]
     Active Substance: APREMILAST
     Dosage: .4 MILLIGRAM
     Route: 048
     Dates: start: 20150916
  3. CHLORD/CLID 15 [Concomitant]
     Indication: IRRITABLE BOWEL SYNDROME
     Route: 065
  4. TAMSULOSIN [Concomitant]
     Active Substance: TAMSULOSIN
     Indication: PROSTATOMEGALY
     Dosage: 2.5 MILLIGRAM
     Route: 065

REACTIONS (1)
  - Skin haemorrhage [Not Recovered/Not Resolved]

NARRATIVE: CASE EVENT DATE: 20150916
